FAERS Safety Report 24238832 (Version 2)
Quarter: 2024Q3

REPORT INFORMATION
  Report Type: Report from Study
  Country: JP (occurrence: JP)
  Receive Date: 20240822
  Receipt Date: 20240826
  Transmission Date: 20241017
  Serious: Yes (Hospitalization, Other)
  Sender: PFIZER
  Company Number: JP-ONO-2024JP017081

PATIENT
  Age: 72 Year
  Weight: 50.2 kg

DRUGS (6)
  1. BRAFTOVI [Suspect]
     Active Substance: ENCORAFENIB
     Indication: Colon cancer
     Dosage: 200 MG, EVERYDAY
     Route: 048
     Dates: start: 20230728, end: 20230815
  2. BRAFTOVI [Suspect]
     Active Substance: ENCORAFENIB
     Dosage: 200 MG, EVERYDAY
     Route: 048
     Dates: start: 20230901, end: 20231011
  3. MEKTOVI [Suspect]
     Active Substance: BINIMETINIB
     Indication: Colon cancer
     Dosage: 60 MG, EVERYDAY
     Route: 048
     Dates: start: 20230728, end: 20230815
  4. MEKTOVI [Suspect]
     Active Substance: BINIMETINIB
     Dosage: 60 MG, EVERYDAY
     Route: 048
     Dates: start: 20230901, end: 20231011
  5. CETUXIMAB [Concomitant]
     Active Substance: CETUXIMAB
     Indication: Colon cancer
     Dosage: 370 MG
     Route: 065
     Dates: start: 20230728, end: 20230728
  6. CETUXIMAB [Concomitant]
     Active Substance: CETUXIMAB
     Dosage: 370 MG
     Route: 065
     Dates: start: 20230901, end: 20230901

REACTIONS (4)
  - Abdominal abscess [Recovering/Resolving]
  - Small intestinal obstruction [Recovered/Resolved]
  - Escherichia infection [Unknown]
  - Underdose [Unknown]

NARRATIVE: CASE EVENT DATE: 20230728
